FAERS Safety Report 11659587 (Version 1)
Quarter: 2015Q4

REPORT INFORMATION
  Report Type: Spontaneous
  Country: BR (occurrence: BR)
  Receive Date: 20151026
  Receipt Date: 20151026
  Transmission Date: 20160304
  Serious: Yes (Death, Hospitalization, Other)
  Sender: FDA-Public Use
  Company Number: BR-WATSON-2015-22712

PATIENT
  Age: 20 Year
  Sex: Male

DRUGS (3)
  1. METHYLPREDNISOLONE (UNKNOWN) [Suspect]
     Active Substance: METHYLPREDNISOLONE
     Indication: SYSTEMIC LUPUS ERYTHEMATOSUS
     Dosage: 1 G, DAILY
     Route: 065
  2. CYCLOPHOSPHAMIDE (UNKNOWN) [Suspect]
     Active Substance: CYCLOPHOSPHAMIDE
     Indication: SYSTEMIC LUPUS ERYTHEMATOSUS
     Dosage: 500 MG, UNK
     Route: 065
  3. PREDNISOLONE (UNKNOWN) [Suspect]
     Active Substance: PREDNISOLONE
     Indication: SYSTEMIC LUPUS ERYTHEMATOSUS
     Dosage: 1 MG/KG, DAILY
     Route: 065

REACTIONS (6)
  - Lung infection [Unknown]
  - Cytomegalovirus infection [Recovered/Resolved]
  - Pancytopenia [Unknown]
  - Thyroiditis subacute [Fatal]
  - Aspergillus infection [Fatal]
  - Hyperthyroidism [Not Recovered/Not Resolved]
